FAERS Safety Report 24125299 (Version 1)
Quarter: 2024Q3

REPORT INFORMATION
  Report Type: Report from Study
  Country: ES (occurrence: None)
  Receive Date: 20240723
  Receipt Date: 20240723
  Transmission Date: 20241016
  Serious: Yes (Hospitalization, Other)
  Sender: ASTRAZENECA
  Company Number: 2024A162365

PATIENT
  Age: 43 Year
  Sex: Female

DRUGS (1)
  1. FASENRA [Suspect]
     Active Substance: BENRALIZUMAB
     Indication: Asthma
     Dosage: UNKNOWN
     Route: 058

REACTIONS (5)
  - Cough [Recovering/Resolving]
  - Asphyxia [Recovering/Resolving]
  - Sensitive skin [Recovering/Resolving]
  - Pruritus [Recovering/Resolving]
  - Eyelids pruritus [Unknown]

NARRATIVE: CASE EVENT DATE: 20240618
